FAERS Safety Report 6639350-7 (Version None)
Quarter: 2010Q1

REPORT INFORMATION
  Report Type: 
  Country: None (occurrence: None)
  Receive Date: 20100315
  Receipt Date: 20100301
  Transmission Date: 20100710
  Serious: Yes (Death, Hospitalization, Other)
  Sender: FDA-Public Use
  Company Number: KADN20100058

PATIENT
  Age: 21 Year
  Sex: Male

DRUGS (6)
  1. MORPHINE [Suspect]
     Indication: DRUG USE FOR UNKNOWN INDICATION
     Dates: end: 20080101
  2. CLONAZEPAM [Suspect]
     Indication: DRUG USE FOR UNKNOWN INDICATION
     Dates: end: 20080101
  3. PROPOXYPHENE HCL [Suspect]
     Dates: end: 20080101
  4. MARIJUANA [Suspect]
     Indication: DRUG USE FOR UNKNOWN INDICATION
     Dates: end: 20080101
  5. LORAZEPAM [Suspect]
     Indication: DRUG USE FOR UNKNOWN INDICATION
     Dates: end: 20080101
  6. HYDROMORPHONE HCL [Suspect]
     Indication: DRUG USE FOR UNKNOWN INDICATION
     Dates: end: 20080101

REACTIONS (17)
  - ACCIDENTAL DEATH [None]
  - AREFLEXIA [None]
  - BLOOD PH DECREASED [None]
  - BLOOD PRESSURE DIASTOLIC DECREASED [None]
  - BODY TEMPERATURE INCREASED [None]
  - BRONCHOPNEUMONIA [None]
  - CARDIAC ARREST [None]
  - DRUG ABUSE [None]
  - DRUG SCREEN POSITIVE [None]
  - ELECTROENCEPHALOGRAM ABNORMAL [None]
  - HEART RATE INCREASED [None]
  - LUNG CONSOLIDATION [None]
  - PUPIL FIXED [None]
  - RESPIRATORY ARREST [None]
  - RESPIRATORY RATE INCREASED [None]
  - UNRESPONSIVE TO STIMULI [None]
  - VENTRICULAR FIBRILLATION [None]
